FAERS Safety Report 18436557 (Version 1)
Quarter: 2020Q4

REPORT INFORMATION
  Report Type: Spontaneous
  Country: GB (occurrence: GB)
  Receive Date: 20201028
  Receipt Date: 20201028
  Transmission Date: 20210114
  Serious: Yes (Other)
  Sender: FDA-Public Use
  Company Number: GB-AMGEN-GBRSP2020172190

PATIENT
  Age: 54 Year
  Sex: Female

DRUGS (1)
  1. ADALIMUMAB [Suspect]
     Active Substance: ADALIMUMAB
     Indication: PSORIASIS
     Dosage: UNK
     Route: 065

REACTIONS (8)
  - Malaise [Unknown]
  - Decreased appetite [Unknown]
  - Palmoplantar keratoderma [Recovered/Resolved]
  - Paradoxical drug reaction [Recovering/Resolving]
  - Acute kidney injury [Recovering/Resolving]
  - Erythrodermic psoriasis [Recovered/Resolved]
  - Haemodynamic instability [Recovering/Resolving]
  - Arthralgia [Unknown]
